FAERS Safety Report 7034869-1 (Version None)
Quarter: 2010Q4

REPORT INFORMATION
  Report Type: 
  Country: None (occurrence: None)
  Receive Date: 20101008
  Receipt Date: 20100927
  Transmission Date: 20110411
  Serious: Yes (Other)
  Sender: FDA-Public Use
  Company Number: US-PFIZER INC-2010107270

PATIENT
  Age: 35 Year
  Sex: Female
  Weight: 84.821 kg

DRUGS (5)
  1. DOXORUBICIN HCL [Suspect]
     Indication: BREAST CANCER
     Dosage: 116 MG
     Route: 040
     Dates: start: 20100824
  2. CYCLOPHOSPHAMIDE [Concomitant]
     Dosage: UNK
     Dates: start: 20100824
  3. EMEND [Concomitant]
     Dosage: 125 MG, UNK
     Route: 048
  4. DECADRON [Concomitant]
     Dosage: 12 MG, UNK
     Route: 040
  5. ALOXI [Concomitant]
     Dosage: 0.25 MG, UNK
     Route: 040

REACTIONS (2)
  - DYSPNOEA [None]
  - URTICARIA [None]
